FAERS Safety Report 7369414-4 (Version None)
Quarter: 2011Q1

REPORT INFORMATION
  Report Type: 
  Country: None (occurrence: None)
  Receive Date: 20110323
  Receipt Date: 20110314
  Transmission Date: 20110831
  Serious: Yes (Hospitalization)
  Sender: FDA-Public Use
  Company Number: FR-ROCHE-766915

PATIENT
  Sex: Male

DRUGS (14)
  1. AVASTIN [Suspect]
     Route: 065
     Dates: end: 20101101
  2. HOLOXAN [Suspect]
     Dosage: SECOND COURSE
     Route: 065
     Dates: start: 20101125
  3. ONCOVIN [Suspect]
     Route: 065
     Dates: end: 20101101
  4. AVASTIN [Suspect]
     Dosage: SECOND COURSE
     Route: 065
     Dates: start: 20101125
  5. ACTINOMYCIN D [Suspect]
     Route: 065
     Dates: end: 20101101
  6. AVASTIN [Suspect]
     Dosage: THIRD COURSE
     Route: 065
     Dates: start: 20101215
  7. ADRIAMYCIN PFS [Suspect]
     Dosage: SECOND COURSE
     Route: 065
  8. ONCOVIN [Suspect]
     Dosage: SECOND COURSE DAY 8
     Route: 065
     Dates: start: 20101210
  9. ONCOVIN [Suspect]
     Dosage: THIRD COURSE
     Route: 065
     Dates: start: 20101215
  10. ACTINOMYCIN D [Suspect]
     Dosage: THIRD COURSE
     Route: 065
     Dates: start: 20101215
  11. HOLOXAN [Suspect]
     Route: 065
     Dates: end: 20101101
  12. ACTINOMYCIN D [Suspect]
     Route: 065
  13. ADRIAMYCIN PFS [Suspect]
     Route: 065
  14. ADRIAMYCIN PFS [Suspect]
     Route: 065

REACTIONS (1)
  - PANCREATITIS [None]
